FAERS Safety Report 9733291 (Version 2)
Quarter: 2013Q4

REPORT INFORMATION
  Report Type: Spontaneous
  Country: DE (occurrence: DE)
  Receive Date: 20131205
  Receipt Date: 20131205
  Transmission Date: 20140711
  Serious: Yes (Other)
  Sender: FDA-Public Use
  Company Number: DE-UCBSA-097541

PATIENT
  Sex: Male

DRUGS (2)
  1. NEUPRO [Suspect]
     Indication: PARKINSON^S DISEASE
     Dosage: DOSE: 6MG/24 HOURS
     Route: 062
  2. NEUPRO [Suspect]
     Indication: PARKINSON^S DISEASE
     Dosage: CONTINUED DOSE: 6MG/24 HOURS
     Route: 062

REACTIONS (8)
  - Bronchial carcinoma [Not Recovered/Not Resolved]
  - Parkinson^s disease [Unknown]
  - Aphasia [Unknown]
  - Rash [Unknown]
  - Pruritus [Unknown]
  - Skin irritation [Unknown]
  - Fall [Unknown]
  - Weight decreased [Unknown]
